FAERS Safety Report 6502149-6 (Version None)
Quarter: 2009Q4

REPORT INFORMATION
  Report Type: 
  Country: None (occurrence: None)
  Receive Date: 20091216
  Receipt Date: 20090925
  Transmission Date: 20100525
  Serious: No
  Sender: FDA-Public Use
  Company Number: US-ABBOTT-09P-163-0599909-00

PATIENT
  Sex: Male

DRUGS (9)
  1. TRILIPIX [Suspect]
     Indication: BLOOD CHOLESTEROL INCREASED
     Route: 048
     Dates: start: 20090701
  2. TRILIPIX [Suspect]
     Indication: BLOOD TRIGLYCERIDES INCREASED
  3. SYNTHROID [Concomitant]
     Indication: HYPOTHYROIDISM
     Route: 048
  4. ENBREL [Concomitant]
     Indication: DRUG USE FOR UNKNOWN INDICATION
  5. ALLOPURINOL [Concomitant]
     Indication: GOUT
  6. DIGOXIN [Concomitant]
     Indication: CORONARY ARTERY DISEASE
  7. ACTOS [Concomitant]
     Indication: TYPE 2 DIABETES MELLITUS
  8. SIMCOR [Concomitant]
     Indication: BLOOD CHOLESTEROL INCREASED
  9. UROCRIT K [Concomitant]
     Indication: ELECTROLYTE SUBSTITUTION THERAPY

REACTIONS (1)
  - INCORRECT DOSE ADMINISTERED [None]
